FAERS Safety Report 4736482-5 (Version None)
Quarter: 2005Q3

REPORT INFORMATION
  Report Type: 
  Country: None (occurrence: None)
  Receive Date: 20050804
  Receipt Date: 20050804
  Transmission Date: 20060218
  Serious: Yes (Other)
  Sender: FDA-Public Use
  Company Number: None

PATIENT
  Age: 39 Year
  Sex: Female

DRUGS (3)
  1. CEFAZOLIN SODIUM IN DEXTROSE 5% [Suspect]
     Indication: ANTIBIOTIC PROPHYLAXIS
     Dosage: 1 GM X1 IV
     Route: 042
     Dates: start: 20050803
  2. CEFAZOLIN SODIUM IN DEXTROSE 5% [Suspect]
     Indication: PREOPERATIVE CARE
     Dosage: 1 GM X1 IV
     Route: 042
     Dates: start: 20050803
  3. NORMAL SALINE [Concomitant]

REACTIONS (2)
  - DYSPNOEA [None]
  - GENERALISED ERYTHEMA [None]
